FAERS Safety Report 18790895 (Version 2)
Quarter: 2021Q1

REPORT INFORMATION
  Report Type: Report from Study
  Country: CA (occurrence: CA)
  Receive Date: 20210126
  Receipt Date: 20210204
  Transmission Date: 20210419
  Serious: Yes (Death, Other)
  Sender: FDA-Public Use
  Company Number: CA-TAKEDA-CA202016419

PATIENT
  Age: 64 Year
  Sex: Male

DRUGS (1)
  1. GAMMAGARD LIQUID [Suspect]
     Active Substance: HUMAN IMMUNOGLOBULIN G
     Indication: PRIMARY IMMUNODEFICIENCY SYNDROME
     Dosage: 8 MILLIGRAM, 1X/WEEK
     Route: 065
     Dates: start: 20200513, end: 20201117

REACTIONS (2)
  - Lymphoma [Fatal]
  - Infusion site reaction [Unknown]

NARRATIVE: CASE EVENT DATE: 20200513
